FAERS Safety Report 23237351 (Version 1)
Quarter: 2023Q4

REPORT INFORMATION
  Report Type: Spontaneous
  Country: AT (occurrence: AT)
  Receive Date: 20231128
  Receipt Date: 20231128
  Transmission Date: 20240110
  Serious: Yes (Other)
  Sender: FDA-Public Use
  Company Number: AT-AMGEN-AUTSP2023209987

PATIENT
  Age: 50 Year
  Sex: Male

DRUGS (3)
  1. LUMAKRAS [Suspect]
     Active Substance: SOTORASIB
     Indication: K-ras gene mutation
     Dosage: 960 MILLIGRAM, QD
     Route: 065
     Dates: start: 20220324, end: 2022
  2. LUMAKRAS [Suspect]
     Active Substance: SOTORASIB
     Indication: Non-small cell lung cancer
     Dosage: 480 MILLIGRAM, DOSE REDUCTION FOR 2 MONTHS
     Route: 065
     Dates: start: 2022, end: 2022
  3. LUMAKRAS [Suspect]
     Active Substance: SOTORASIB
     Dosage: 960 MILLIGRAM, QD
     Route: 065
     Dates: start: 2022, end: 202212

REACTIONS (3)
  - Non-small cell lung cancer [Unknown]
  - Therapy interrupted [Unknown]
  - Diarrhoea [Unknown]

NARRATIVE: CASE EVENT DATE: 20221001
